FAERS Safety Report 9813636 (Version 1)
Quarter: 2014Q1

REPORT INFORMATION
  Report Type: Spontaneous
  Country: HR (occurrence: HR)
  Receive Date: 20140113
  Receipt Date: 20140113
  Transmission Date: 20141002
  Serious: Yes (Other)
  Sender: FDA-Public Use
  Company Number: HR-TEVA-453600ISR

PATIENT
  Sex: Female
  Weight: 70 kg

DRUGS (3)
  1. VOLTAREN FORTE [Suspect]
     Indication: ARTHRITIS
     Dosage: ENTERIC
     Route: 048
     Dates: start: 2008
  2. DECORTIN [Concomitant]
     Indication: ARTHRITIS
     Dosage: 10 MILLIGRAM DAILY;
     Route: 048
     Dates: start: 2003
  3. METHOTREXAT EBEWE [Concomitant]
     Indication: ARTHRITIS

REACTIONS (3)
  - Haematochezia [Recovered/Resolved]
  - Haemorrhoids [Recovered/Resolved]
  - Medication error [Recovered/Resolved]
